FAERS Safety Report 15901312 (Version 1)
Quarter: 2019Q1

REPORT INFORMATION
  Report Type: Spontaneous
  Country: CN (occurrence: CN)
  Receive Date: 20190201
  Receipt Date: 20190201
  Transmission Date: 20190417
  Serious: Yes (Other)
  Sender: FDA-Public Use
  Company Number: CN-PFIZER INC-2019042216

PATIENT
  Age: 28 Year
  Sex: Male

DRUGS (1)
  1. CRIZOTINIB [Suspect]
     Active Substance: CRIZOTINIB
     Indication: EPITHELIOID SARCOMA
     Dosage: 200 MG, 2X/DAY
     Route: 048
     Dates: start: 201607

REACTIONS (3)
  - Product use in unapproved indication [Unknown]
  - Bone marrow failure [Unknown]
  - Oedema [Unknown]

NARRATIVE: CASE EVENT DATE: 201607
